FAERS Safety Report 8586142-8 (Version None)
Quarter: 2012Q3

REPORT INFORMATION
  Report Type: 
  Country: None (occurrence: None)
  Receive Date: 20120810
  Receipt Date: 20120730
  Transmission Date: 20120928
  Serious: Yes (Hospitalization)
  Sender: FDA-Public Use
  Company Number: US-GLAXOSMITHKLINE-A0787937A

PATIENT
  Age: 57 Year
  Sex: Male
  Weight: 97.7 kg

DRUGS (1)
  1. AVANDIA [Suspect]
     Indication: TYPE 2 DIABETES MELLITUS
     Route: 048
     Dates: start: 20030401, end: 20080101

REACTIONS (6)
  - TRANSIENT ISCHAEMIC ATTACK [None]
  - PORTAL HYPERTENSION [None]
  - SPINAL COLUMN STENOSIS [None]
  - CARDIOVASCULAR DISORDER [None]
  - CARDIAC FAILURE CONGESTIVE [None]
  - OSTEOPENIA [None]
